FAERS Safety Report 23689193 (Version 1)
Quarter: 2024Q1

REPORT INFORMATION
  Report Type: Report from Study
  Country: US (occurrence: US)
  Receive Date: 20240330
  Receipt Date: 20240330
  Transmission Date: 20240410
  Serious: Yes (Other)
  Sender: FDA-Public Use
  Company Number: US-JNJFOC-20240364193

PATIENT
  Age: 38 Year
  Sex: Male

DRUGS (1)
  1. SPRAVATO [Suspect]
     Active Substance: ESKETAMINE
     Indication: Depression
     Dates: start: 20240318, end: 20240318

REACTIONS (2)
  - Suicidal ideation [Unknown]
  - Burning sensation [Unknown]

NARRATIVE: CASE EVENT DATE: 20240301
